FAERS Safety Report 4705746-3 (Version None)
Quarter: 2005Q3

REPORT INFORMATION
  Report Type: 
  Country: None (occurrence: None)
  Receive Date: 20050701
  Receipt Date: 20050525
  Transmission Date: 20060218
  Serious: Yes (Disabling)
  Sender: FDA-Public Use
  Company Number: GB-MERCK-0505GBR00217

PATIENT
  Age: 47 Year
  Sex: Male
  Weight: 70 kg

DRUGS (9)
  1. ZETIA [Suspect]
     Indication: DIABETES MELLITUS
     Route: 048
     Dates: start: 20050304, end: 20050321
  2. ZETIA [Suspect]
     Route: 048
     Dates: start: 20050425, end: 20050505
  3. ZETIA [Suspect]
     Route: 048
     Dates: start: 20050110, end: 20050130
  4. ZETIA [Suspect]
     Indication: HYPERLIPIDAEMIA
     Route: 048
     Dates: start: 20050304, end: 20050321
  5. ZETIA [Suspect]
     Route: 048
     Dates: start: 20050425, end: 20050505
  6. ZETIA [Suspect]
     Route: 048
     Dates: start: 20050110, end: 20050130
  7. INSULIN HUMAN [Concomitant]
     Indication: DIABETES MELLITUS
     Route: 065
     Dates: start: 19870101, end: 20020901
  8. INSULIN HUMAN [Concomitant]
     Route: 065
     Dates: start: 20020922
  9. SIMVASTATIN [Concomitant]
     Indication: DIABETES MELLITUS
     Route: 065
     Dates: start: 20000402

REACTIONS (3)
  - DISTURBANCE IN ATTENTION [None]
  - FATIGUE [None]
  - LETHARGY [None]
